FAERS Safety Report 6522973-3 (Version None)
Quarter: 2009Q4

REPORT INFORMATION
  Report Type: 
  Country: None (occurrence: None)
  Receive Date: 20091230
  Receipt Date: 20091217
  Transmission Date: 20100525
  Serious: Yes (Hospitalization)
  Sender: FDA-Public Use
  Company Number: US-WATSON-2009-10809

PATIENT
  Sex: Female

DRUGS (1)
  1. FENTANYL-50 [Suspect]
     Indication: PAIN
     Dosage: 1 PATCH, SINGLE
     Route: 062
     Dates: start: 20091216, end: 20091216

REACTIONS (4)
  - CHEST PAIN [None]
  - DYSARTHRIA [None]
  - DYSKINESIA [None]
  - OVERDOSE [None]
